FAERS Safety Report 4380318-1 (Version None)
Quarter: 2004Q2

REPORT INFORMATION
  Report Type: 
  Country: None (occurrence: None)
  Receive Date: 20040616
  Receipt Date: 20040616
  Transmission Date: 20050107
  Serious: Yes (Hospitalization, Other)
  Sender: FDA-Public Use
  Company Number: None

PATIENT
  Age: 65 Year
  Sex: Female

DRUGS (2)
  1. PROMETHAZINE [Suspect]
     Indication: NAUSEA
     Dosage: 1 DOSE
     Route: 042
     Dates: start: 20040520
  2. PROMETHAZINE [Suspect]
     Indication: VOMITING
     Dosage: 1 DOSE
     Route: 042
     Dates: start: 20040520

REACTIONS (1)
  - RESPIRATORY ARREST [None]
